FAERS Safety Report 5231653-6 (Version None)
Quarter: 2007Q1

REPORT INFORMATION
  Report Type: 
  Country: None (occurrence: None)
  Receive Date: 20070202
  Receipt Date: 20070125
  Transmission Date: 20070707
  Serious: Yes (Other)
  Sender: FDA-Public Use
  Company Number: 2007SP001703

PATIENT
  Age: 60 Year
  Sex: Male

DRUGS (10)
  1. PEG-INTRON [Suspect]
     Indication: HEPATITIS C
     Dosage: SC
     Route: 058
     Dates: start: 20060228, end: 20070124
  2. RIBAVIRIN [Suspect]
     Indication: HEPATITIS C
     Dosage: PO
     Route: 048
     Dates: start: 20060228, end: 20070124
  3. VITAMIN B COMPLEX CAP [Concomitant]
  4. CALCIUM CARBONATE W/ MAGNESIUM [Concomitant]
  5. CALCIUM W/ VITAMIN D NOS [Concomitant]
  6. EFFEXOR [Concomitant]
  7. VITAMIN A [Concomitant]
  8. ASCORBIC ACID [Concomitant]
  9. VITAMIN E [Concomitant]
  10. MULTI-VITAMIN [Concomitant]

REACTIONS (9)
  - DRY MOUTH [None]
  - ERYTHEMA [None]
  - MUSCLE SPASMS [None]
  - MYALGIA [None]
  - PAIN IN EXTREMITY [None]
  - RASH [None]
  - SKIN EXFOLIATION [None]
  - SKIN HAEMORRHAGE [None]
  - THIRST [None]
